FAERS Safety Report 22186710 (Version 1)
Quarter: 2023Q2

REPORT INFORMATION
  Report Type: Spontaneous
  Country: US (occurrence: US)
  Receive Date: 20230407
  Receipt Date: 20230407
  Transmission Date: 20230722
  Serious: Yes (Other)
  Sender: FDA-Public Use
  Company Number: US-CTI BIOPHARMA-2023US03506

PATIENT

DRUGS (2)
  1. VONJO [Suspect]
     Active Substance: PACRITINIB
     Indication: Myelofibrosis
     Dosage: 200 MG, BID
     Route: 048
  2. RADIATION THERAPY [Suspect]
     Active Substance: RADIATION THERAPY

REACTIONS (4)
  - Intraocular pressure increased [Unknown]
  - Squamous cell carcinoma [Unknown]
  - Malaise [Unknown]
  - Splenomegaly [Unknown]
